FAERS Safety Report 5823952-1 (Version None)
Quarter: 2008Q3

REPORT INFORMATION
  Report Type: 
  Country: None (occurrence: None)
  Receive Date: 20080724
  Receipt Date: 20080711
  Transmission Date: 20090109
  Serious: Yes (Death)
  Sender: FDA-Public Use
  Company Number: 235299J08USA

PATIENT
  Age: 66 Year
  Sex: Male

DRUGS (7)
  1. REBIF [Suspect]
     Indication: MULTIPLE SCLEROSIS
     Dosage: 44 MCG, 3 IN 1 WEEKS, SUBCUTANEOUS
     Route: 058
     Dates: start: 20020905, end: 20080512
  2. AGGRENOX [Concomitant]
  3. AMANTADINE HCL [Concomitant]
  4. CRESTOR [Concomitant]
  5. DIOVAN [Concomitant]
  6. BACLOFEN [Concomitant]
  7. METOPROLOL TARTRATE [Concomitant]

REACTIONS (1)
  - CEREBRAL HAEMORRHAGE [None]
